FAERS Safety Report 17298840 (Version 1)
Quarter: 2020Q1

REPORT INFORMATION
  Report Type: Spontaneous
  Country: GB (occurrence: GB)
  Receive Date: 20200121
  Receipt Date: 20200121
  Transmission Date: 20200409
  Serious: Yes (Other)
  Sender: FDA-Public Use
  Company Number: NVSC2020GB010518

PATIENT
  Age: 39 Year
  Sex: Male
  Weight: 95.25 kg

DRUGS (1)
  1. ACICLOVIR [Suspect]
     Active Substance: ACYCLOVIR
     Indication: PRODUCT USED FOR UNKNOWN INDICATION
     Dosage: 4000 MG, QD (FOR 7 DAYS)
     Route: 048
     Dates: start: 20180705, end: 20180708

REACTIONS (1)
  - Vision blurred [Not Recovered/Not Resolved]

NARRATIVE: CASE EVENT DATE: 20180707
